FAERS Safety Report 17949087 (Version 1)
Quarter: 2020Q2

REPORT INFORMATION
  Report Type: Spontaneous
  Country: US (occurrence: US)
  Receive Date: 20200625
  Receipt Date: 20200625
  Transmission Date: 20200714
  Serious: No
  Sender: FDA-Public Use
  Company Number: US-ROCHE-2457674

PATIENT
  Age: 38 Year
  Sex: Female

DRUGS (9)
  1. FLONASE [Concomitant]
     Active Substance: FLUTICASONE PROPIONATE
     Route: 065
  2. VALIUM [Suspect]
     Active Substance: DIAZEPAM
     Indication: AGITATION
     Route: 065
  3. LAMICTAL [Suspect]
     Active Substance: LAMOTRIGINE
     Indication: BIPOLAR I DISORDER
     Dosage: AT BEDTIME
     Route: 065
     Dates: start: 2000
  4. RESTORIL [Concomitant]
     Active Substance: TEMAZEPAM
     Route: 065
     Dates: start: 20131016
  5. ENBREL [Concomitant]
     Active Substance: ETANERCEPT
     Indication: PSORIASIS
     Route: 065
  6. SEROQUEL [Suspect]
     Active Substance: QUETIAPINE FUMARATE
     Indication: SLEEP DISORDER
     Dosage: AT BEDTIME
     Route: 065
     Dates: start: 2000
  7. KLONOPIN [Suspect]
     Active Substance: CLONAZEPAM
     Indication: AGITATION
     Dosage: AT LUNCHTIME AND BEDTIME
     Route: 065
     Dates: start: 2000
  8. EFFEXOR [Concomitant]
     Active Substance: VENLAFAXINE HYDROCHLORIDE
     Indication: DEPRESSED MOOD
     Route: 065
  9. TYLENOL WITH CODEINE [Concomitant]
     Active Substance: ACETAMINOPHEN\CODEINE PHOSPHATE
     Dosage: LUNCH TIME AND DINNER TIME.
     Route: 065
     Dates: start: 2000

REACTIONS (1)
  - Withdrawal syndrome [Recovering/Resolving]
